FAERS Safety Report 5677426-1 (Version None)
Quarter: 2008Q1

REPORT INFORMATION
  Report Type: 
  Country: None (occurrence: None)
  Receive Date: 20080324
  Receipt Date: 20080318
  Transmission Date: 20080703
  Serious: Yes (Life-Threatening, Hospitalization, Other)
  Sender: FDA-Public Use
  Company Number: AU-JNJFOC-20080304326

PATIENT
  Age: 64 Year
  Sex: Male

DRUGS (6)
  1. ABCIXIMAB [Suspect]
     Indication: PERCUTANEOUS CORONARY INTERVENTION
     Route: 042
  2. CLOPIDOGREL [Concomitant]
  3. INOTROPES [Concomitant]
  4. FLUIDS [Concomitant]
  5. HEAPRIN [Concomitant]
  6. ASPIRIN [Concomitant]

REACTIONS (12)
  - ACUTE MYOCARDIAL INFARCTION [None]
  - AKINESIA [None]
  - EPIGASTRIC DISCOMFORT [None]
  - GASTROENTERITIS RADIATION [None]
  - HAEMOGLOBIN DECREASED [None]
  - HYPOTENSION [None]
  - IN-STENT CORONARY ARTERY RESTENOSIS [None]
  - PROTHROMBIN TIME PROLONGED [None]
  - RECTAL HAEMORRHAGE [None]
  - SINUS BRADYCARDIA [None]
  - THROMBOCYTOPENIA [None]
  - THROMBOSIS [None]
